FAERS Safety Report 22782983 (Version 5)
Quarter: 2023Q4

REPORT INFORMATION
  Report Type: Report from Study
  Country: US (occurrence: US)
  Receive Date: 20230803
  Receipt Date: 20231107
  Transmission Date: 20240110
  Serious: Yes (Hospitalization, Other)
  Sender: FDA-Public Use
  Company Number: US-ABBVIE-5351660

PATIENT
  Sex: Female

DRUGS (2)
  1. VENCLEXTA [Suspect]
     Active Substance: VENETOCLAX
     Indication: Acute myeloid leukaemia
     Dosage: DAYS 1 THROUGH 14 THEN 21 DAYS OFF  TOOK 3 TABLETS WITH FOOD AND A FULL GLASS OF WATER?STRENGTH: ...
     Route: 048
     Dates: start: 2023
  2. VENCLEXTA [Suspect]
     Active Substance: VENETOCLAX
     Indication: Acute myeloid leukaemia
     Dosage: TAKING 14 DAYS AND OFF FOR 14 DAYS?STRENGTH: 100 MG?FREQUENCY TEXT: 4 TABLETS BY MOUTH ONCE DAILY
     Route: 048
     Dates: start: 2023, end: 2023

REACTIONS (4)
  - Platelet count decreased [Recovering/Resolving]
  - White blood cell count decreased [Unknown]
  - Off label use [Unknown]
  - Neutrophil count decreased [Unknown]

NARRATIVE: CASE EVENT DATE: 20230101
